FAERS Safety Report 11840674 (Version 1)
Quarter: 2015Q4

REPORT INFORMATION
  Report Type: Spontaneous
  Country: US (occurrence: None)
  Receive Date: 20151215
  Receipt Date: 20151215
  Transmission Date: 20160305
  Serious: Yes (Life-Threatening, Hospitalization, Other)
  Sender: FDA-Public Use
  Company Number: None

PATIENT
  Age: 77 Year
  Sex: Female
  Weight: 93.44 kg

DRUGS (27)
  1. COUMADIN HCTZ [Concomitant]
  2. GABAPENTIN. [Concomitant]
     Active Substance: GABAPENTIN
  3. MUCINEX [Concomitant]
     Active Substance: GUAIFENESIN
  4. NORCO [Concomitant]
     Active Substance: ACETAMINOPHEN\HYDROCODONE BITARTRATE
  5. MONTELUKAST [Concomitant]
     Active Substance: MONTELUKAST SODIUM
  6. LISINOPRIL LUPIN [Suspect]
     Active Substance: LISINOPRIL
     Indication: HYPERTENSION
     Dosage: BY MOUTH
     Route: 048
     Dates: start: 2007, end: 20151030
  7. PREVACID [Concomitant]
     Active Substance: LANSOPRAZOLE
  8. VITAMIN B12 [Concomitant]
     Active Substance: CYANOCOBALAMIN
  9. VIT. D3 [Concomitant]
  10. BENADRYL [Concomitant]
     Active Substance: DIPHENHYDRAMINE HYDROCHLORIDE
  11. ZYRTEC [Concomitant]
     Active Substance: CETIRIZINE HYDROCHLORIDE
  12. MELATONIN [Concomitant]
     Active Substance: MELATONIN
  13. BOOST R-ALA [Concomitant]
  14. MAGNESIUM [Concomitant]
     Active Substance: MAGNESIUM
  15. METFORMIN [Concomitant]
     Active Substance: METFORMIN HYDROCHLORIDE
  16. NORVASC [Concomitant]
     Active Substance: AMLODIPINE BESYLATE
  17. PREDNISONE. [Concomitant]
     Active Substance: PREDNISONE
  18. ZYRTEC-D [Concomitant]
     Active Substance: CETIRIZINE HYDROCHLORIDE\PSEUDOEPHEDRINE HYDROCHLORIDE
  19. CALCIUM [Concomitant]
     Active Substance: CALCIUM
  20. AMARYL [Concomitant]
     Active Substance: GLIMEPIRIDE
  21. ATIVAN [Concomitant]
     Active Substance: LORAZEPAM
  22. MULTI VITAMIN C [Concomitant]
  23. SINGULAIR [Concomitant]
     Active Substance: MONTELUKAST SODIUM
  24. VIT. B1 [Concomitant]
  25. PRO-BIOTICS [Concomitant]
  26. PHOSPHATELY LIME COMPLEX [Concomitant]
  27. POTASSIUM [Concomitant]
     Active Substance: POTASSIUM

REACTIONS (5)
  - Pyrexia [None]
  - Anaphylactic reaction [None]
  - Confusional state [None]
  - Urinary tract infection [None]
  - Dysstasia [None]

NARRATIVE: CASE EVENT DATE: 20150510
